FAERS Safety Report 12886362 (Version 1)
Quarter: 2016Q4

REPORT INFORMATION
  Report Type: Spontaneous
  Country: DE (occurrence: DE)
  Receive Date: 20161026
  Receipt Date: 20161026
  Transmission Date: 20170207
  Serious: Yes (Other)
  Sender: FDA-Public Use
  Company Number: DE-JNJFOC-20161020667

PATIENT
  Sex: Male

DRUGS (2)
  1. RISPERDAL [Suspect]
     Active Substance: RISPERIDONE
     Indication: PRODUCT USED FOR UNKNOWN INDICATION
     Dosage: SINCE SEVERAL YEARS;
     Route: 048
  2. BARACLUDE [Interacting]
     Active Substance: ENTECAVIR
     Indication: PRODUCT USED FOR UNKNOWN INDICATION
     Dosage: STARTED IN SEP (YEAR UNSPECIFIED)
     Route: 065

REACTIONS (4)
  - Drug interaction [Unknown]
  - Weight increased [Unknown]
  - Hepatitis B [Unknown]
  - Drug level decreased [Unknown]
